FAERS Safety Report 6751488-2 (Version None)
Quarter: 2010Q2

REPORT INFORMATION
  Report Type: 
  Country: None (occurrence: None)
  Receive Date: 20100602
  Receipt Date: 20100524
  Transmission Date: 20101027
  Serious: Yes (Death, Hospitalization)
  Sender: FDA-Public Use
  Company Number: US-ROCHE-704629

PATIENT
  Age: 63 Year
  Sex: Female

DRUGS (4)
  1. TRASTUZUMAB [Suspect]
     Indication: BREAST CANCER
     Route: 065
     Dates: start: 20050101
  2. TRASTUZUMAB [Suspect]
     Route: 065
     Dates: start: 20070101
  3. EPIRUBICIN [Concomitant]
     Indication: BREAST CANCER
  4. CYCLOPHOSPHAMIDE [Concomitant]
     Indication: BREAST CANCER

REACTIONS (5)
  - AMYLOIDOSIS [None]
  - CARDIOMYOPATHY [None]
  - MULTIPLE MYELOMA [None]
  - RENAL FAILURE [None]
  - SPINAL COMPRESSION FRACTURE [None]
